FAERS Safety Report 8997622 (Version 1)
Quarter: 2013Q1

REPORT INFORMATION
  Report Type: Spontaneous
  Country: CN (occurrence: CN)
  Receive Date: 20130104
  Receipt Date: 20130104
  Transmission Date: 20140127
  Serious: Yes (Other)
  Sender: FDA-Public Use
  Company Number: PHHY2012CN120742

PATIENT
  Age: 41 Year
  Sex: Male
  Weight: 72 kg

DRUGS (1)
  1. VOTALIN [Suspect]
     Indication: ECZEMA
     Dosage: 1 VIAL, BID
     Dates: start: 20090811, end: 20090811

REACTIONS (6)
  - Anaphylactoid reaction [Recovering/Resolving]
  - Blister [Recovering/Resolving]
  - Skin swelling [Recovering/Resolving]
  - Hypersensitivity [Recovering/Resolving]
  - Erythema [Recovering/Resolving]
  - Pruritus [Recovering/Resolving]
